FAERS Safety Report 24313488 (Version 1)
Quarter: 2024Q3

REPORT INFORMATION
  Report Type: Spontaneous
  Country: US (occurrence: None)
  Receive Date: 20240911
  Receipt Date: 20240911
  Transmission Date: 20241016
  Serious: Yes (Other)
  Sender: Public
  Company Number: None

PATIENT
  Age: 39 Year
  Sex: Female

DRUGS (2)
  1. SUBOXONE [Suspect]
     Active Substance: BUPRENORPHINE HYDROCHLORIDE\NALOXONE HYDROCHLORIDE
     Indication: Drug use disorder
     Dates: start: 20170401, end: 20171215
  2. SUBOXONE [Suspect]
     Active Substance: BUPRENORPHINE HYDROCHLORIDE\NALOXONE HYDROCHLORIDE

REACTIONS (9)
  - Migraine [None]
  - Nausea [None]
  - Vomiting [None]
  - Burning sensation [None]
  - Erythema [None]
  - Erythema [None]
  - Erythema [None]
  - Feeling hot [None]
  - Rash [None]

NARRATIVE: CASE EVENT DATE: 20170510
